FAERS Safety Report 4418326-4 (Version None)
Quarter: 2004Q3

REPORT INFORMATION
  Report Type: 
  Country: None (occurrence: None)
  Receive Date: 20040809
  Receipt Date: 20040206
  Transmission Date: 20050211
  Serious: No
  Sender: FDA-Public Use
  Company Number: US-GLAXOSMITHKLINE-A0497095A

PATIENT
  Age: 74 Year
  Sex: Female

DRUGS (2)
  1. PAXIL CR [Suspect]
     Indication: ILL-DEFINED DISORDER
     Dosage: 5MG PER DAY
     Route: 048
     Dates: start: 20040204
  2. CLONAZEPAM [Concomitant]

REACTIONS (1)
  - NERVOUSNESS [None]
